FAERS Safety Report 21886741 (Version 1)
Quarter: 2023Q1

REPORT INFORMATION
  Report Type: Report from Study
  Country: KE (occurrence: KE)
  Receive Date: 20230119
  Receipt Date: 20230119
  Transmission Date: 20230417
  Serious: Yes (Death)
  Sender: FDA-Public Use
  Company Number: KE-002147023-NVSC2023KE011530

PATIENT
  Age: 60 Year
  Sex: Male

DRUGS (1)
  1. SACUBITRIL\VALSARTAN [Suspect]
     Active Substance: SACUBITRIL\VALSARTAN
     Indication: Cardiac failure chronic
     Dosage: 50 MG, BID
     Route: 048
     Dates: start: 202210

REACTIONS (5)
  - Cardiac failure [Fatal]
  - Chest pain [Fatal]
  - Cough [Fatal]
  - Malaise [Fatal]
  - Asthenia [Fatal]

NARRATIVE: CASE EVENT DATE: 20221101
